FAERS Safety Report 6134231-X (Version None)
Quarter: 2009Q1

REPORT INFORMATION
  Report Type: 
  Country: None (occurrence: None)
  Receive Date: 20090326
  Receipt Date: 20090318
  Transmission Date: 20090719
  Serious: Yes (Death, Life-Threatening, Hospitalization, Disabling)
  Sender: FDA-Public Use
  Company Number: FR-GENENTECH-222158

PATIENT
  Sex: Female

DRUGS (5)
  1. RITUXIMAB [Suspect]
     Indication: MANTLE CELL LYMPHOMA
     Dosage: 375 MG/M2, UNK
     Dates: start: 20051205
  2. CYCLOPHOSPHAMIDE [Concomitant]
     Indication: MANTLE CELL LYMPHOMA
  3. DOXORUBICIN HCL [Concomitant]
     Indication: MANTLE CELL LYMPHOMA
  4. VINCRISTINE [Concomitant]
     Indication: MANTLE CELL LYMPHOMA
  5. PREDNISONE [Concomitant]
     Indication: MANTLE CELL LYMPHOMA

REACTIONS (1)
  - PROGRESSIVE MULTIFOCAL LEUKOENCEPHALOPATHY [None]
